FAERS Safety Report 9636542 (Version 1)
Quarter: 2013Q4

REPORT INFORMATION
  Report Type: Spontaneous
  Country: US (occurrence: None)
  Receive Date: 20131017
  Receipt Date: 20131017
  Transmission Date: 20140711
  Serious: Yes (Other)
  Sender: FDA-Public Use
  Company Number: FK201304572

PATIENT
  Age: 15 Year
  Sex: Male

DRUGS (7)
  1. METHYLPREDNISOLONE SODIUM SUCCINATE [Suspect]
     Indication: PRODUCT USED FOR UNKNOWN INDICATION
     Dosage: 40 MG, 1 IN 2 HR, IV
     Route: 042
  2. SULFASALAZINE (SULFASALAZINE) [Suspect]
     Indication: INFLAMMATORY BOWEL DISEASE
  3. DOXYCYCLINE (DOXYCYCLINE) [Concomitant]
  4. ACETAMINOPHEN (PARACETAMOL) [Concomitant]
  5. DIPHENYDRAMINE (DIPHENHYDRAMINE) [Concomitant]
  6. VANCOMYCIN (VANCOMYCIN) [Concomitant]
  7. CEFTRIAXONE (CEFTRIAXONE) [Concomitant]

REACTIONS (2)
  - Human herpesvirus 6 infection [None]
  - Drug reaction with eosinophilia and systemic symptoms [None]
